FAERS Safety Report 6188993-6 (Version None)
Quarter: 2009Q2

REPORT INFORMATION
  Report Type: 
  Country: None (occurrence: None)
  Receive Date: 20090512
  Receipt Date: 20090512
  Transmission Date: 20091009
  Serious: Yes (Other)
  Sender: FDA-Public Use
  Company Number: None

PATIENT
  Sex: Female
  Weight: 70.7611 kg

DRUGS (2)
  1. LEXAPRO [Suspect]
     Indication: MAJOR DEPRESSION
     Dosage: 20 MG ONCE DAILY PO
     Route: 048
     Dates: start: 20050906, end: 20050920
  2. CITALOPRAM HYDROBROMIDE [Suspect]
     Indication: MAJOR DEPRESSION
     Dosage: 20 MG THREE TIMES DAILY PO
     Route: 048
     Dates: start: 20051217, end: 20060112

REACTIONS (6)
  - ABDOMINAL DISCOMFORT [None]
  - ABDOMINAL PAIN [None]
  - ERUCTATION [None]
  - FLATULENCE [None]
  - MUSCLE SPASMS [None]
  - NAUSEA [None]
